FAERS Safety Report 7914480-8 (Version None)
Quarter: 2011Q4

REPORT INFORMATION
  Report Type: 
  Country: None (occurrence: None)
  Receive Date: 20111115
  Receipt Date: 20111104
  Transmission Date: 20120403
  Serious: Yes (Hospitalization)
  Sender: FDA-Public Use
  Company Number: US-JNJFOC-20111102729

PATIENT
  Sex: Female
  Weight: 61.4 kg

DRUGS (5)
  1. MESALAMINE [Concomitant]
  2. PREDNISONE TAB [Concomitant]
  3. INFLIXIMAB, RECOMBINANT [Suspect]
     Indication: CROHN'S DISEASE
     Route: 042
     Dates: start: 20090724, end: 20101217
  4. ADALIMUMAB [Concomitant]
  5. ADALIMUMAB [Concomitant]
     Dates: start: 20110427

REACTIONS (1)
  - CROHN'S DISEASE [None]
